FAERS Safety Report 12632170 (Version 2)
Quarter: 2016Q3

REPORT INFORMATION
  Report Type: Spontaneous
  Country: US (occurrence: US)
  Receive Date: 20160808
  Receipt Date: 20160808
  Transmission Date: 20161109
  Serious: No
  Sender: FDA-Public Use
  Company Number: US-BEH-2016062069

PATIENT
  Age: 56 Year
  Sex: Female
  Weight: 126 kg

DRUGS (35)
  1. LEVAQUIN [Concomitant]
     Active Substance: LEVOFLOXACIN
  2. LEFLUNOMIDE. [Concomitant]
     Active Substance: LEFLUNOMIDE
  3. LEXAPRO [Concomitant]
     Active Substance: ESCITALOPRAM OXALATE
  4. MULTIVITAMIN [Concomitant]
     Active Substance: VITAMINS
  5. HIZENTRA [Suspect]
     Active Substance: HUMAN IMMUNOGLOBULIN G
     Indication: SEASONAL ALLERGY
     Route: 058
  6. TAMIFLU [Concomitant]
     Active Substance: OSELTAMIVIR PHOSPHATE
  7. ALBUTEROL. [Concomitant]
     Active Substance: ALBUTEROL
  8. BENADRYL [Concomitant]
     Active Substance: DIPHENHYDRAMINE HYDROCHLORIDE
  9. SINGULAIR [Concomitant]
     Active Substance: MONTELUKAST SODIUM
  10. PLAQUENIL [Concomitant]
     Active Substance: HYDROXYCHLOROQUINE SULFATE
  11. VALIUM [Concomitant]
     Active Substance: DIAZEPAM
  12. CARDIZEM [Concomitant]
     Active Substance: DILTIAZEM HYDROCHLORIDE
  13. LASIX [Concomitant]
     Active Substance: FUROSEMIDE
  14. LANTUS [Concomitant]
     Active Substance: INSULIN GLARGINE
  15. VITAMIN D [Concomitant]
     Active Substance: CHOLECALCIFEROL
  16. FISH OIL [Concomitant]
     Active Substance: FISH OIL
  17. VITAMIN B COMPLEX [Concomitant]
     Active Substance: CYANOCOBALAMIN\DEXPANTHENOL\NIACINAMIDE\PYRIDOXINE HYDROCHLORIDE\RIBOFLAVIN 5^-PHOSPHATE SODIUM\THIAMINE HYDROCHLORIDE\VITAMIN B COMPLEX
  18. DULERA [Concomitant]
     Active Substance: FORMOTEROL FUMARATE DIHYDRATE\MOMETASONE FUROATE
  19. LIPITOR [Concomitant]
     Active Substance: ATORVASTATIN CALCIUM
  20. METFORMIN [Concomitant]
     Active Substance: METFORMIN HYDROCHLORIDE
  21. NEXIUM [Concomitant]
     Active Substance: ESOMEPRAZOLE MAGNESIUM
  22. CLARITIN [Concomitant]
     Active Substance: LORATADINE
  23. TRAZODONE [Concomitant]
     Active Substance: TRAZODONE HYDROCHLORIDE
  24. OXYGEN. [Concomitant]
     Active Substance: OXYGEN
  25. HUMALOG [Concomitant]
     Active Substance: INSULIN LISPRO
  26. HIZENTRA [Suspect]
     Active Substance: HUMAN IMMUNOGLOBULIN G
     Indication: IMMUNODEFICIENCY COMMON VARIABLE
     Route: 058
  27. DIOVAN [Concomitant]
     Active Substance: VALSARTAN
  28. CLONAZEPAM. [Concomitant]
     Active Substance: CLONAZEPAM
  29. ZYRTEC [Concomitant]
     Active Substance: CETIRIZINE HYDROCHLORIDE
  30. EPIPEN [Concomitant]
     Active Substance: EPINEPHRINE
  31. NEURONTIN [Concomitant]
     Active Substance: GABAPENTIN
  32. LAMICTAL [Concomitant]
     Active Substance: LAMOTRIGINE
  33. HIZENTRA [Suspect]
     Active Substance: HUMAN IMMUNOGLOBULIN G
     Route: 058
     Dates: start: 20100601
  34. MACROBID [Concomitant]
     Active Substance: NITROFURANTOIN\NITROFURANTOIN MONOHYDRATE
  35. L-THYROXINE [Concomitant]
     Active Substance: LEVOTHYROXINE

REACTIONS (1)
  - Urinary tract infection [Unknown]

NARRATIVE: CASE EVENT DATE: 20160115
